FAERS Safety Report 6749733-2 (Version None)
Quarter: 2010Q2

REPORT INFORMATION
  Report Type: 
  Country: None (occurrence: None)
  Receive Date: 20100601
  Receipt Date: 20100522
  Transmission Date: 20101027
  Serious: Yes (Hospitalization, Other)
  Sender: FDA-Public Use
  Company Number: US-AMGEN-US103989

PATIENT
  Sex: Female

DRUGS (5)
  1. ENBREL [Suspect]
     Indication: RHEUMATOID ARTHRITIS
     Route: 058
     Dates: start: 20041113
  2. ENBREL [Suspect]
     Route: 058
  3. SYNTHROID [Concomitant]
     Route: 065
  4. ESTRACE [Concomitant]
     Route: 065
  5. VITAMINS [Concomitant]
     Route: 065

REACTIONS (11)
  - CHEST PAIN [None]
  - FATIGUE [None]
  - INJECTION SITE PAIN [None]
  - MYOSITIS [None]
  - PERICARDITIS [None]
  - PLEURISY [None]
  - PNEUMONIA [None]
  - RESPIRATORY DISORDER [None]
  - RESPIRATORY DISTRESS [None]
  - RHEUMATOID ARTHRITIS [None]
  - SYSTEMIC LUPUS ERYTHEMATOSUS [None]
